FAERS Safety Report 10242410 (Version 2)
Quarter: 2014Q4

REPORT INFORMATION
  Report Type: Spontaneous
  Country: DK (occurrence: DK)
  Receive Date: 20140617
  Receipt Date: 20141027
  Transmission Date: 20150528
  Serious: Yes (Hospitalization)
  Sender: FDA-Public Use
  Company Number: DK-PFIZER INC-2014163353

PATIENT
  Age: 35 Year
  Sex: Female

DRUGS (2)
  1. MIFEGYNE [Concomitant]
     Active Substance: MIFEPRISTONE
     Indication: ABORTION INDUCED
     Dosage: 200 MG, SINGLE
     Route: 048
     Dates: start: 20140526
  2. CYTOTEC [Suspect]
     Active Substance: MISOPROSTOL
     Indication: ABORTION INDUCED
     Dosage: 0.8 MG AS SINGLE DOSE (STRENGTH: 0.2 MG)
     Route: 067
     Dates: start: 20140527, end: 20140527

REACTIONS (4)
  - Chills [Recovered/Resolved]
  - Product use issue [Recovered/Resolved]
  - Nervousness [Unknown]
  - Pyrexia [Recovered/Resolved]

NARRATIVE: CASE EVENT DATE: 20140527
